FAERS Safety Report 10446877 (Version 3)
Quarter: 2015Q1

REPORT INFORMATION
  Report Type: Spontaneous
  Country: US (occurrence: None)
  Receive Date: 20140909
  Receipt Date: 20150304
  Transmission Date: 20150720
  Serious: Yes (Other)
  Sender: FDA-Public Use
  Company Number: 2014-20275

PATIENT
  Age: 97 Year
  Sex: Male

DRUGS (1)
  1. EYLEA [Suspect]
     Active Substance: AFLIBERCEPT
     Indication: AGE-RELATED MACULAR DEGENERATION
     Dosage: 2 MG MILLIGRAM(S)/0.05 ML, EVERY 6-8 WEEKS
     Dates: start: 20140709, end: 20140709

REACTIONS (6)
  - Vision blurred [None]
  - Conjunctival haemorrhage [None]
  - Blindness [None]
  - Eye pain [None]
  - Eye inflammation [None]
  - Vitreous floaters [None]

NARRATIVE: CASE EVENT DATE: 20140825
